FAERS Safety Report 14841060 (Version 1)
Quarter: 2018Q2

REPORT INFORMATION
  Report Type: Spontaneous
  Country: RU (occurrence: RU)
  Receive Date: 20180503
  Receipt Date: 20180503
  Transmission Date: 20180711
  Serious: Yes (Other)
  Sender: FDA-Public Use
  Company Number: RU-LUPIN PHARMACEUTICALS INC.-2018-03496

PATIENT
  Age: 65 Year
  Sex: Female
  Weight: 64 kg

DRUGS (2)
  1. RIFABUTIN. [Suspect]
     Active Substance: RIFABUTIN
     Indication: PULMONARY TUBERCULOSIS
     Dosage: 0.45 G, QD
     Route: 065
     Dates: start: 20130901
  2. RIFABUTIN. [Suspect]
     Active Substance: RIFABUTIN
     Dosage: 0.3 G, UNK
     Route: 065

REACTIONS (1)
  - Hepatitis toxic [Unknown]
